FAERS Safety Report 15189768 (Version 5)
Quarter: 2018Q4

REPORT INFORMATION
  Report Type: Spontaneous
  Country: JP (occurrence: JP)
  Receive Date: 20180724
  Receipt Date: 20181226
  Transmission Date: 20190204
  Serious: Yes (Life-Threatening, Hospitalization, Other)
  Sender: FDA-Public Use
  Company Number: JP-009507513-1807JPN001994J

PATIENT
  Age: 74 Year
  Sex: Female
  Weight: 39 kg

DRUGS (15)
  1. GENINAX [Concomitant]
     Active Substance: GARENOXACIN MESYLATE
     Indication: INFLAMMATION
     Dosage: 400 MG, QD
     Route: 048
     Dates: start: 20171204, end: 20171208
  2. PREDONINE [Concomitant]
     Active Substance: PREDNISOLONE
     Dosage: 10 UNK
     Route: 048
     Dates: start: 20180123, end: 20180212
  3. PREDONINE [Concomitant]
     Active Substance: PREDNISOLONE
     Indication: INFLAMMATION
     Dosage: 20 MILLIGRAM, QD
     Route: 048
     Dates: start: 20171219, end: 20180101
  4. KEYTRUDA [Suspect]
     Active Substance: PEMBROLIZUMAB
     Indication: LUNG ADENOCARCINOMA
     Dosage: 200 MG, Q3W
     Route: 041
     Dates: start: 20171128, end: 20180410
  5. ADONA [CARBAZOCHROME SODIUM SULFONATE] [Suspect]
     Active Substance: CARBAZOCHROME SODIUM SULFONATE
     Indication: HAEMOPTYSIS
     Dosage: 30 MG, TID
     Route: 048
     Dates: start: 20180606, end: 20180712
  6. MAGNESIUM OXIDE. [Concomitant]
     Active Substance: MAGNESIUM OXIDE
     Indication: CONSTIPATION
     Dosage: 250 MG, TID APPROPRIATE ADJUSTMENT
     Route: 048
     Dates: start: 20171128, end: 20180712
  7. PREDONINE [Concomitant]
     Active Substance: PREDNISOLONE
     Dosage: 15 UNK
     Route: 048
     Dates: start: 20180521, end: 20180627
  8. ABRAXANE [Suspect]
     Active Substance: PACLITAXEL
     Indication: LUNG ADENOCARCINOMA
     Dosage: 120 MG, UNK
     Route: 041
     Dates: start: 20180515, end: 20180704
  9. TRANSAMIN [Suspect]
     Active Substance: TRANEXAMIC ACID
     Indication: HAEMOPTYSIS
     Dosage: 250 MG, TID
     Route: 048
     Dates: start: 20180606, end: 20180712
  10. PREDONINE [Concomitant]
     Active Substance: PREDNISOLONE
     Dosage: 15 UNK
     Route: 048
     Dates: start: 20180102, end: 20180122
  11. LANSOPRAZOLE. [Concomitant]
     Active Substance: LANSOPRAZOLE
     Indication: PROPHYLAXIS
     Dosage: 15 MILLIGRAM, QD
     Route: 048
     Dates: start: 20180105, end: 20180712
  12. BAKTAR [Concomitant]
     Active Substance: SULFAMETHOXAZOLE\TRIMETHOPRIM
     Indication: PROPHYLAXIS
     Dosage: 35 DOSAGE FORM, QD
     Route: 048
     Dates: start: 20180105, end: 20180711
  13. PREDONINE [Concomitant]
     Active Substance: PREDNISOLONE
     Dosage: 20 UNK
     Route: 048
     Dates: start: 20180213, end: 20180520
  14. PREDONINE [Concomitant]
     Active Substance: PREDNISOLONE
     Dosage: 10 UNK
     Route: 048
     Dates: start: 20180628, end: 20180712
  15. BONALON [Concomitant]
     Active Substance: ALENDRONATE SODIUM
     Indication: PROPHYLAXIS
     Dosage: 35 MILLIGRAM, QW
     Route: 048
     Dates: start: 20180109, end: 20180711

REACTIONS (4)
  - Liver disorder [Recovered/Resolved]
  - Pyrexia [Recovered/Resolved]
  - Haemoptysis [Recovered/Resolved]
  - Febrile neutropenia [Recovered/Resolved]

NARRATIVE: CASE EVENT DATE: 20171219
